FAERS Safety Report 12700326 (Version 1)
Quarter: 2016Q3

REPORT INFORMATION
  Report Type: Spontaneous
  Country: US (occurrence: US)
  Receive Date: 20160830
  Receipt Date: 20160830
  Transmission Date: 20161109
  Serious: No
  Sender: FDA-Public Use
  Company Number: US-SA-2015SA181025

PATIENT
  Age: 41 Year
  Sex: Male
  Weight: 74.84 kg

DRUGS (11)
  1. EPIPEN [Concomitant]
     Active Substance: EPINEPHRINE
     Route: 030
     Dates: start: 20150707
  2. ESCITALOPRAM OXALATE. [Concomitant]
     Active Substance: ESCITALOPRAM OXALATE
     Route: 048
     Dates: start: 20150610
  3. FABRAZYME [Suspect]
     Active Substance: AGALSIDASE BETA
     Indication: LIPIDOSIS
     Route: 042
     Dates: start: 20100519
  4. SODIUM CHLORIDE. [Concomitant]
     Active Substance: SODIUM CHLORIDE
     Dates: start: 20150707
  5. PREDNISONE. [Concomitant]
     Active Substance: PREDNISONE
     Dates: start: 20150711
  6. ZANTAC [Concomitant]
     Active Substance: RANITIDINE HYDROCHLORIDE
     Dates: start: 20150610
  7. DIPHENHYDRAMINE. [Concomitant]
     Active Substance: DIPHENHYDRAMINE
     Route: 048
     Dates: start: 20150707
  8. NORMAL SALINE [Concomitant]
     Active Substance: SODIUM CHLORIDE
     Route: 042
     Dates: start: 20150707
  9. TYLENOL [Concomitant]
     Active Substance: ACETAMINOPHEN
     Dates: start: 20150610
  10. LISINOPRIL. [Concomitant]
     Active Substance: LISINOPRIL
     Route: 048
     Dates: start: 20150610
  11. BENADRYL [Concomitant]
     Active Substance: DIPHENHYDRAMINE HYDROCHLORIDE
     Route: 048
     Dates: start: 20150610

REACTIONS (3)
  - Gastroenteritis viral [Unknown]
  - Nausea [Unknown]
  - Vomiting [Unknown]

NARRATIVE: CASE EVENT DATE: 20151102
